FAERS Safety Report 15218481 (Version 2)
Quarter: 2018Q3

REPORT INFORMATION
  Report Type: Spontaneous
  Country: JP (occurrence: JP)
  Receive Date: 20180730
  Receipt Date: 20180815
  Transmission Date: 20181010
  Serious: Yes (Hospitalization, Other)
  Sender: FDA-Public Use
  Company Number: JP-009507513-1807JPN002731J

PATIENT
  Age: 2 Decade

DRUGS (1)
  1. DESALEX TABLETS 5MG [Suspect]
     Active Substance: DESLORATADINE
     Dosage: 5 MG, QD
     Route: 048
     Dates: start: 20180717

REACTIONS (3)
  - Epstein-Barr virus infection [Recovered/Resolved]
  - Liver function test increased [Recovered/Resolved]
  - Gallbladder enlargement [Recovered/Resolved]

NARRATIVE: CASE EVENT DATE: 20180723
